FAERS Safety Report 8411704-8 (Version None)
Quarter: 2012Q2

REPORT INFORMATION
  Report Type: 
  Country: None (occurrence: None)
  Receive Date: 20120605
  Receipt Date: 20120529
  Transmission Date: 20120825
  Serious: Yes (Hospitalization, Other)
  Sender: FDA-Public Use
  Company Number: US-ASTRAZENECA-2011SE32252

PATIENT
  Age: 63 Year
  Sex: Female

DRUGS (17)
  1. CALCIUM CARBONATE [Concomitant]
     Dates: start: 20000101, end: 20020101
  2. ROLAIDS [Concomitant]
     Dates: start: 20000101, end: 20020101
  3. DEPOESTRADOL [Concomitant]
     Dates: start: 19960101, end: 19990101
  4. NEXIUM [Suspect]
     Route: 048
     Dates: start: 20091001
  5. VITAMIN D [Concomitant]
     Indication: OSTEOPOROSIS
  6. NAPROXEN (ALEVE) [Concomitant]
  7. IBUPROFEN (ADVIL) [Concomitant]
     Dosage: PRN
  8. NEXIUM [Suspect]
     Indication: GASTROOESOPHAGEAL REFLUX DISEASE
     Route: 048
     Dates: start: 20030101, end: 20090101
  9. DARVOCET-N 50 [Concomitant]
     Dosage: 100 TID
  10. NEXIUM [Suspect]
     Route: 048
     Dates: start: 20030101, end: 20090101
  11. NEXIUM [Suspect]
     Route: 048
     Dates: start: 20091001
  12. NAPROXEN (ALEVE) [Concomitant]
     Indication: PAIN
  13. FORTEO [Concomitant]
     Indication: OSTEOPOROSIS
     Route: 065
  14. NEXIUM [Suspect]
     Route: 048
     Dates: start: 20040101, end: 20100101
  15. NEXIUM [Suspect]
     Route: 048
     Dates: start: 20040101, end: 20100101
  16. EVAMIST [Concomitant]
  17. ACIPHEX [Concomitant]
     Indication: GASTROOESOPHAGEAL REFLUX DISEASE
     Dates: start: 20070401

REACTIONS (8)
  - SPINAL COMPRESSION FRACTURE [None]
  - LUMBAR RADICULOPATHY [None]
  - VITAMIN D DEFICIENCY [None]
  - POST LAMINECTOMY SYNDROME [None]
  - EMOTIONAL DISTRESS [None]
  - OSTEOPOROSIS [None]
  - BONE LOSS [None]
  - BACK INJURY [None]
